FAERS Safety Report 11043843 (Version 1)
Quarter: 2015Q2

REPORT INFORMATION
  Report Type: Report from Study
  Country: US (occurrence: US)
  Receive Date: 20150417
  Receipt Date: 20150417
  Transmission Date: 20150821
  Serious: Yes (Hospitalization, Other)
  Sender: FDA-Public Use
  Company Number: PHEH2015US006725

PATIENT
  Sex: Female

DRUGS (1)
  1. AFINITOR [Suspect]
     Active Substance: EVEROLIMUS
     Indication: PRODUCT USED FOR UNKNOWN INDICATION
     Dosage: 10 MG, QD (ONCE DAILY)
     Route: 048
     Dates: start: 20150211

REACTIONS (7)
  - Peripheral swelling [Unknown]
  - Renal failure [Unknown]
  - Dyspnoea [Unknown]
  - Malaise [Unknown]
  - Nausea [Unknown]
  - Heart rate increased [Unknown]
  - Neoplasm [Unknown]
